FAERS Safety Report 4744080-2 (Version None)
Quarter: 2005Q3

REPORT INFORMATION
  Report Type: 
  Country: None (occurrence: None)
  Receive Date: 20050812
  Receipt Date: 20050722
  Transmission Date: 20060218
  Serious: Yes (Other)
  Sender: FDA-Public Use
  Company Number: FRWYE854125JUL05

PATIENT
  Sex: Male
  Weight: 78 kg

DRUGS (10)
  1. ENBREL [Suspect]
     Indication: RHEUMATOID ARTHRITIS
     Route: 058
     Dates: start: 20040601, end: 20050620
  2. CORTANCYL [Concomitant]
     Route: 048
     Dates: start: 20041001
  3. ACETYLSALICYLATE LYSINE [Concomitant]
     Dates: start: 20041001
  4. OMEPRAZOLE [Concomitant]
     Dates: start: 20041001, end: 20050701
  5. DIFFU K [Concomitant]
     Dates: start: 20041001
  6. COLECALCIFEROL [Concomitant]
     Route: 048
     Dates: start: 20041001
  7. ACTONEL [Concomitant]
     Route: 048
     Dates: start: 20041001
  8. TAHOR [Concomitant]
     Route: 048
     Dates: start: 20050201
  9. CORTICOSTEROID NOS [Concomitant]
     Dates: start: 20000101
  10. CALCIUM GLUCONATE [Concomitant]
     Dates: start: 20041001

REACTIONS (3)
  - FALL [None]
  - MYELITIS [None]
  - WALLENBERG SYNDROME [None]
